FAERS Safety Report 4530455-3 (Version None)
Quarter: 2004Q4

REPORT INFORMATION
  Report Type: 
  Country: None (occurrence: None)
  Receive Date: 20041215
  Receipt Date: 20041129
  Transmission Date: 20050328
  Serious: Yes (Hospitalization)
  Sender: FDA-Public Use
  Company Number: TRP_0041_2004

PATIENT
  Age: 40 Year
  Sex: Female

DRUGS (15)
  1. RIBASPHERE [Suspect]
     Indication: HEPATITIS C
     Dosage: 1200 MG QDAY PO
     Route: 048
     Dates: start: 20040902, end: 20041110
  2. INTERFERGEN / INTERFERON ALFACON-1/ INTERMUNE [Suspect]
     Indication: HEPATITIS C
     Dosage: 15 MCG QDAY SC
     Route: 058
     Dates: start: 20040902, end: 20041108
  3. INTERFERGEN /INTERFERON ALFACON-1/ INTERMUNE [Suspect]
     Indication: HEPATITIS C
     Dosage: 15 MCG QDAY SC
     Route: 058
     Dates: start: 20041110, end: 20041110
  4. ORTHO TRI-CYCLEN [Concomitant]
  5. CELEXA [Concomitant]
  6. HYDROCODONE [Concomitant]
  7. ZANAFLEX [Concomitant]
  8. SYNTHROID [Concomitant]
  9. NEXIUM [Concomitant]
  10. PROMETHAZINE [Concomitant]
  11. ZOFRAN [Concomitant]
  12. QUININE SULFATE [Concomitant]
  13. KLONOPIN [Concomitant]
  14. VALIUM [Concomitant]
  15. LEXAPRO [Concomitant]

REACTIONS (6)
  - BLOOD PRESSURE INCREASED [None]
  - CSF PRESSURE INCREASED [None]
  - HEADACHE [None]
  - NAUSEA [None]
  - PAIN [None]
  - SELF-INDUCED VOMITING [None]
